FAERS Safety Report 9240172 (Version 1)
Quarter: 2013Q1

REPORT INFORMATION
  Report Type: Spontaneous
  Country: US (occurrence: None)
  Receive Date: 20121119
  Receipt Date: 20121119
  Transmission Date: 20140127
  Serious: Yes (Other)
  Sender: FDA-Public Use
  Company Number: 062788

PATIENT
  Sex: 0

DRUGS (1)
  1. LACOSAMIDE [Suspect]
     Indication: CONVULSION
     Dosage: TO UNKNOWN?

REACTIONS (1)
  - Complex partial seizures [None]
